FAERS Safety Report 14141560 (Version 1)
Quarter: 2017Q4

REPORT INFORMATION
  Report Type: Spontaneous
  Country: CN (occurrence: CN)
  Receive Date: 20171030
  Receipt Date: 20171030
  Transmission Date: 20180321
  Serious: Yes (Hospitalization)
  Sender: FDA-Public Use
  Company Number: CN-NOVOPROD-569322

PATIENT
  Age: 54 Year
  Sex: Female
  Weight: 54 kg

DRUGS (6)
  1. SODIUM VALPROATE [Concomitant]
     Active Substance: VALPROATE SODIUM
     Indication: PAIN
     Dosage: 200 MG, BID
     Route: 048
     Dates: start: 20170717, end: 20170721
  2. NOVORAPID [Suspect]
     Active Substance: INSULIN ASPART
     Dosage: UNK
     Route: 058
  3. NOVORAPID [Suspect]
     Active Substance: INSULIN ASPART
     Indication: BLOOD GLUCOSE INCREASED
     Dosage: 13 IU, QD (3 IU BEFORE BREAKFAST, 5 IU BEFORE LUNCH, AND 5 IU BEFORE DINNER)
     Route: 058
     Dates: start: 20170720, end: 20170721
  4. EPERISONE HYDROCHLORIDE [Concomitant]
     Active Substance: EPERISONE HYDROCHLORIDE
     Indication: PAIN
     Dosage: 50 MG, TID
     Route: 048
     Dates: start: 20170717, end: 20170721
  5. ESOMEPRAZOLE MAGNESIUM. [Concomitant]
     Active Substance: ESOMEPRAZOLE MAGNESIUM
     Indication: HYPERCHLORHYDRIA
     Dosage: 20 MG, QD
     Route: 048
     Dates: start: 20170717, end: 20170721
  6. FLUNARIZINE HYDROCHLORIDE [Concomitant]
     Active Substance: FLUNARIZINE HYDROCHLORIDE
     Indication: VERTIGO
     Dosage: 5 MG, QD
     Route: 048
     Dates: start: 20170717, end: 20170721

REACTIONS (2)
  - Pruritus [Recovering/Resolving]
  - Urticaria [Recovering/Resolving]

NARRATIVE: CASE EVENT DATE: 20170720
